FAERS Safety Report 8420812-7 (Version None)
Quarter: 2012Q2

REPORT INFORMATION
  Report Type: 
  Country: None (occurrence: None)
  Receive Date: 20120608
  Receipt Date: 20120606
  Transmission Date: 20120825
  Serious: Yes (Hospitalization)
  Sender: FDA-Public Use
  Company Number: US-PFIZER INC-2012136516

PATIENT
  Sex: Male

DRUGS (10)
  1. NAMENDA [Concomitant]
     Dosage: UNK
  2. PROMETHAZINE HYDROCHLORIDE [Concomitant]
     Dosage: UNK
  3. CALCIUM CARBONATE [Concomitant]
     Dosage: UNK
  4. CLONAZEPAM [Concomitant]
     Dosage: UNK
  5. SUTENT [Suspect]
     Indication: RENAL CANCER
     Dosage: 50 MG, 1X/DAY
     Route: 048
  6. LAMICTAL [Concomitant]
     Dosage: UNK
  7. MULTI-VITAMINS [Concomitant]
     Dosage: UNK
  8. METOPROLOL [Concomitant]
     Dosage: UNK
  9. DEPAKOTE [Concomitant]
     Dosage: UNK
  10. GAS-X [Concomitant]
     Dosage: UNK

REACTIONS (1)
  - HYPERTENSION [None]
